FAERS Safety Report 8831964 (Version 1)
Quarter: 2012Q4

REPORT INFORMATION
  Report Type: 
  Country: GB (occurrence: GB)
  Receive Date: 20121009
  Receipt Date: 20121009
  Transmission Date: 20130627
  Serious: Yes (Hospitalization, Other)
  Sender: FDA-Public Use
  Company Number: GB-TEVA-361954ISR

PATIENT
  Age: 55 Year
  Sex: Male

DRUGS (4)
  1. PREDNISOLONE [Suspect]
     Indication: INFLAMMATION
     Route: 065
  2. PREDNISOLONE [Suspect]
     Indication: INFLAMMATION
     Route: 065
     Dates: start: 20120912
  3. PREDNISOLONE [Suspect]
     Indication: INFLAMMATION
     Route: 065
  4. ANTIBIOTICS [Concomitant]
     Dosage: unknown
     Route: 065

REACTIONS (3)
  - Transient ischaemic attack [Unknown]
  - Dizziness [Unknown]
  - Loss of consciousness [Unknown]
